FAERS Safety Report 8238409-0 (Version None)
Quarter: 2012Q1

REPORT INFORMATION
  Report Type: 
  Country: None (occurrence: None)
  Receive Date: 20120309
  Receipt Date: 20091231
  Transmission Date: 20120608
  Serious: No
  Sender: FDA-Public Use
  Company Number: PHEH2009US17276

PATIENT
  Age: 38 Year
  Sex: Female
  Weight: 59 kg

DRUGS (2)
  1. ALEVE /00256202/ (NAPROXEN SODIUM) [Concomitant]
  2. EXTAVIA [Suspect]
     Indication: MULTIPLE SCLEROSIS
     Dosage: 0.25 MG, QOD, SUBCUTANEOUS 0.01875 MG QOD, SUBCUTANEOUS
     Route: 058
     Dates: start: 20091120, end: 20091127

REACTIONS (8)
  - PAIN IN EXTREMITY [None]
  - DIARRHOEA [None]
  - FOOD POISONING [None]
  - HYPOAESTHESIA [None]
  - DIZZINESS [None]
  - PAIN [None]
  - NAUSEA [None]
  - ASTHENIA [None]
